FAERS Safety Report 8666334 (Version 2)
Quarter: 2012Q4

REPORT INFORMATION
  Report Type: 
  Country: US (occurrence: US)
  Receive Date: 20120716
  Receipt Date: 20121106
  Transmission Date: 20130627
  Serious: Yes (Life-Threatening, Hospitalization, Other)
  Sender: FDA-Public Use
  Company Number: US-INCYTE CORPORATION-2012IN001239

PATIENT
  Age: 69 None
  Sex: Male
  Weight: 75.47 kg

DRUGS (14)
  1. LASIX [Concomitant]
     Dosage: 40 mg, bid
     Route: 048
  2. TOPROL XL [Concomitant]
     Dosage: 50 mg, qd
     Route: 048
  3. ZYLOPRIM [Concomitant]
     Dosage: 300 mg, qd
     Route: 048
  4. PROSCAR [Concomitant]
     Dosage: 5 mg, qd
     Route: 048
  5. FLOMAX [Concomitant]
     Dosage: 0.8 mg, qd
     Route: 048
  6. ASPIRIN [Concomitant]
     Dosage: 81 mg, UNK
     Route: 048
  7. JAKAFI [Suspect]
     Indication: MYELOFIBROSIS
     Dosage: 10 mg, qd
     Route: 048
     Dates: start: 201112
  8. JAKAFI [Suspect]
     Dosage: 10 mg, qd
     Route: 048
     Dates: start: 201201, end: 2012
  9. JAKAFI [Suspect]
     Dosage: 20 mg, UNK
     Route: 048
     Dates: start: 2012, end: 20120224
  10. PRADAXA [Suspect]
     Indication: ATRIAL FIBRILLATION
     Dosage: 150 mg, UNK
     Route: 048
     Dates: end: 201202
  11. PRADAXA [Suspect]
     Indication: FLUID OVERLOAD
  12. ZOSYN [Suspect]
     Indication: ANTIBIOTIC PROPHYLAXIS
     Dosage: Not specified
     Dates: start: 20120226
  13. PREVACID [Concomitant]
     Dosage: 60 mg, qam before breakfast
     Route: 048
  14. NORVASC [Concomitant]
     Dosage: 10 mg, qd
     Route: 048

REACTIONS (15)
  - Atrial fibrillation [Recovered/Resolved]
  - Fluid overload [Unknown]
  - Cardiac tamponade [Unknown]
  - Pericardial effusion [Unknown]
  - Pulmonary oedema [Not Recovered/Not Resolved]
  - Acute respiratory failure [Unknown]
  - Thrombocytopenia [Unknown]
  - Leukocytosis [Unknown]
  - Cardiac failure congestive [Unknown]
  - Abdominal distension [None]
  - Hypotension [None]
  - Supraventricular tachycardia [None]
  - Pericardial haemorrhage [None]
  - Pericarditis [None]
  - Leukaemia [None]
